FAERS Safety Report 5385977-2 (Version None)
Quarter: 2007Q3

REPORT INFORMATION
  Report Type: 
  Country: None (occurrence: None)
  Receive Date: 20070712
  Receipt Date: 20070703
  Transmission Date: 20080115
  Serious: Yes (Hospitalization)
  Sender: FDA-Public Use
  Company Number: FI-MERCK-0707FIN00001

PATIENT
  Age: 44 Year
  Sex: Female

DRUGS (5)
  1. MAXALT [Suspect]
     Indication: MIGRAINE
     Route: 048
     Dates: start: 20070510, end: 20070510
  2. MAXALT [Suspect]
     Route: 048
     Dates: end: 20070509
  3. BURANA [Concomitant]
     Indication: MIGRAINE
     Route: 048
     Dates: start: 20070510, end: 20070510
  4. BURANA [Concomitant]
     Route: 048
     Dates: start: 20050101, end: 20070509
  5. NEXIUM [Concomitant]
     Indication: REFLUX OESOPHAGITIS
     Route: 048

REACTIONS (2)
  - CEREBRAL INFARCTION [None]
  - HEMIPARESIS [None]
